FAERS Safety Report 6131876-8 (Version None)
Quarter: 2009Q1

REPORT INFORMATION
  Report Type: 
  Country: None (occurrence: None)
  Receive Date: 20090325
  Receipt Date: 20090312
  Transmission Date: 20090719
  Serious: Yes (Death, Other)
  Sender: FDA-Public Use
  Company Number: NO-PFIZER INC-2009168815

PATIENT

DRUGS (2)
  1. CABASER [Suspect]
     Indication: PARKINSON'S DISEASE
     Dosage: 1 MG, 1X/DAY
     Route: 048
  2. MADOPAR [Concomitant]
     Dosage: UNK
     Route: 048

REACTIONS (3)
  - LUNG INFILTRATION [None]
  - PLEURAL EFFUSION [None]
  - RESPIRATORY DISORDER [None]
